FAERS Safety Report 21813490 (Version 1)
Quarter: 2023Q1

REPORT INFORMATION
  Report Type: Spontaneous
  Country: CA (occurrence: CA)
  Receive Date: 20230103
  Receipt Date: 20230103
  Transmission Date: 20230417
  Serious: Yes (Death, Hospitalization)
  Sender: FDA-Public Use
  Company Number: CA-STRIDES ARCOLAB LIMITED-2023SP000026

PATIENT
  Age: 57 Year
  Sex: Male

DRUGS (14)
  1. ETOPOSIDE [Suspect]
     Active Substance: ETOPOSIDE
     Indication: Diffuse large B-cell lymphoma
     Dosage: UNK, CYCLICAL, R-ICE REGIMEN; FIRST CYCLE
     Route: 065
     Dates: start: 20201201
  2. ETOPOSIDE [Suspect]
     Active Substance: ETOPOSIDE
     Dosage: UNK, CYCLICAL, R-ICE REGIMEN; SECOND CYCLE
     Route: 065
     Dates: start: 20201223
  3. ETOPOSIDE [Suspect]
     Active Substance: ETOPOSIDE
     Dosage: UNK, CYCLICAL, R-ICE REGIMEN; THIRD CYCLE
     Route: 065
     Dates: start: 20210205
  4. CARBOPLATIN [Suspect]
     Active Substance: CARBOPLATIN
     Indication: Diffuse large B-cell lymphoma
     Dosage: UNK, CYCLICAL, R-ICE REGIMEN; FIRST CYCLE
     Route: 065
     Dates: start: 20201201
  5. CARBOPLATIN [Suspect]
     Active Substance: CARBOPLATIN
     Dosage: UNK, CYCLICAL, R-ICE REGIMEN; SECOND CYCLE
     Route: 065
     Dates: start: 20201223
  6. CARBOPLATIN [Suspect]
     Active Substance: CARBOPLATIN
     Dosage: UNK, CYCLICAL, R-ICE REGIMEN; THIRD CYCLE
     Route: 065
     Dates: start: 20210205
  7. PREDNISOLONE [Suspect]
     Active Substance: PREDNISOLONE
     Indication: Product used for unknown indication
     Dosage: UNK,DECREASING DOSAGE
     Route: 065
     Dates: start: 202102
  8. PREDNISOLONE [Suspect]
     Active Substance: PREDNISOLONE
     Dosage: UNK,DOSAGE WAS INCREASED
     Route: 065
     Dates: start: 202103
  9. RITUXIMAB [Suspect]
     Active Substance: RITUXIMAB
     Indication: Diffuse large B-cell lymphoma
     Dosage: UNK, CYCLICAL,R-ICE REGIMEN; FIRST CYCLE
     Route: 065
     Dates: start: 20201201
  10. RITUXIMAB [Suspect]
     Active Substance: RITUXIMAB
     Dosage: UNK, CYCLICAL,R-ICE REGIMEN; SECOND CYCLE
     Route: 065
     Dates: start: 20201223
  11. RITUXIMAB [Suspect]
     Active Substance: RITUXIMAB
     Dosage: UNK, CYCLICAL,R-ICE REGIMEN; THIRD CYCLE
     Route: 065
     Dates: start: 20210205
  12. IFOSFAMIDE [Suspect]
     Active Substance: IFOSFAMIDE
     Indication: Diffuse large B-cell lymphoma
     Dosage: UNK, CYCLICAL, R-ICE REGIMEN; FIRST CYCLE
     Route: 065
     Dates: start: 20201201
  13. IFOSFAMIDE [Suspect]
     Active Substance: IFOSFAMIDE
     Dosage: UNK, CYCLICAL, R-ICE REGIMEN; SECOND CYCLE
     Route: 065
     Dates: start: 20201223
  14. IFOSFAMIDE [Suspect]
     Active Substance: IFOSFAMIDE
     Dosage: UNK, CYCLICAL,R-ICE REGIMEN; THIRD CYCLE
     Route: 065
     Dates: start: 20210205

REACTIONS (3)
  - Post-acute COVID-19 syndrome [Fatal]
  - COVID-19 [Fatal]
  - Off label use [Unknown]
